FAERS Safety Report 5093139-1 (Version None)
Quarter: 2006Q3

REPORT INFORMATION
  Report Type: 
  Country: None (occurrence: None)
  Receive Date: 20060828
  Receipt Date: 20060811
  Transmission Date: 20061208
  Serious: Yes (Other)
  Sender: FDA-Public Use
  Company Number: PAR_0111_2005

PATIENT
  Age: 44 Year
  Sex: Female

DRUGS (3)
  1. IBUPROFEN [Suspect]
     Dosage: DF PO
     Route: 048
     Dates: start: 20040601
  2. ASPERGIC [Concomitant]
  3. NAPROSYN [Concomitant]

REACTIONS (11)
  - CONJUNCTIVAL HYPERAEMIA [None]
  - DRUG INTOLERANCE [None]
  - DYSPHAGIA [None]
  - DYSPHONIA [None]
  - DYSPNOEA [None]
  - ERYTHEMA [None]
  - FACE OEDEMA [None]
  - LARYNGEAL OEDEMA [None]
  - PEAK EXPIRATORY FLOW RATE DECREASED [None]
  - RASH PAPULAR [None]
  - URTICARIA GENERALISED [None]
